FAERS Safety Report 14545962 (Version 2)
Quarter: 2018Q1

REPORT INFORMATION
  Report Type: Report from Study
  Country: FR (occurrence: FR)
  Receive Date: 20180219
  Receipt Date: 20180221
  Transmission Date: 20180509
  Serious: Yes (Other)
  Sender: FDA-Public Use
  Company Number: FR-MERCK KGAA-2042204

PATIENT
  Sex: Female

DRUGS (2)
  1. LUCENTIS [Suspect]
     Active Substance: RANIBIZUMAB
     Route: 031
     Dates: start: 20140909
  2. NOVOTHYROX [Suspect]
     Active Substance: LEVOTHYROXINE SODIUM
     Indication: THYROID DISORDER
     Route: 065

REACTIONS (12)
  - Visual impairment [Recovering/Resolving]
  - Nasopharyngitis [Unknown]
  - Eye pain [Recovering/Resolving]
  - Visual impairment [Recovered/Resolved]
  - Amaurosis [Recovered/Resolved]
  - Vitreous floaters [Recovered/Resolved]
  - Headache [Recovered/Resolved]
  - Headache [Not Recovered/Not Resolved]
  - Thyroid disorder [Unknown]
  - Tremor [Not Recovered/Not Resolved]
  - Sleep apnoea syndrome [Unknown]
  - Amnesia [Not Recovered/Not Resolved]

NARRATIVE: CASE EVENT DATE: 201503
